FAERS Safety Report 15324582 (Version 1)
Quarter: 2018Q3

REPORT INFORMATION
  Report Type: Spontaneous
  Country: US (occurrence: US)
  Receive Date: 20180828
  Receipt Date: 20180828
  Transmission Date: 20181010
  Serious: No
  Sender: FDA-Public Use
  Company Number: US-PFIZER INC-2018304660

PATIENT
  Age: 73 Year
  Sex: Female

DRUGS (3)
  1. ZOLOFT [Suspect]
     Active Substance: SERTRALINE HYDROCHLORIDE
     Dosage: 50 MG, UNK
  2. ZOLOFT [Suspect]
     Active Substance: SERTRALINE HYDROCHLORIDE
     Indication: MOOD SWINGS
     Dosage: UNK
     Dates: start: 1970
  3. ZOLOFT [Suspect]
     Active Substance: SERTRALINE HYDROCHLORIDE
     Dosage: 50 MG, TWICE DAILY (50MG IN MORNING AND 50MG AT NIGHT)

REACTIONS (6)
  - Intentional product misuse [Unknown]
  - Paraesthesia [Unknown]
  - Chest discomfort [Not Recovered/Not Resolved]
  - Withdrawal syndrome [Unknown]
  - Hypotension [Unknown]
  - Heart rate decreased [Unknown]
